FAERS Safety Report 9127732 (Version 1)
Quarter: 2013Q1

REPORT INFORMATION
  Report Type: Spontaneous
  Country: US (occurrence: US)
  Receive Date: 20130228
  Receipt Date: 20130228
  Transmission Date: 20140127
  Serious: No
  Sender: FDA-Public Use
  Company Number: US-GLAXOSMITHKLINE-A0997320A

PATIENT
  Age: 61 Year
  Sex: Male

DRUGS (5)
  1. LAMICTAL [Suspect]
     Indication: BIPOLAR DISORDER
     Dosage: 100MG TWICE PER DAY
     Route: 048
     Dates: start: 20120701
  2. VILAZODONE [Concomitant]
  3. WELLBUTRIN [Concomitant]
  4. XANAX [Concomitant]
  5. PROVIGIL [Concomitant]

REACTIONS (6)
  - Tremor [Not Recovered/Not Resolved]
  - Tremor [Unknown]
  - Balance disorder [Unknown]
  - Coordination abnormal [Unknown]
  - Memory impairment [Unknown]
  - Fall [Unknown]
